FAERS Safety Report 13033217 (Version 2)
Quarter: 2016Q4

REPORT INFORMATION
  Report Type: Spontaneous
  Country: US (occurrence: US)
  Receive Date: 20161216
  Receipt Date: 20161219
  Transmission Date: 20170207
  Serious: No
  Sender: FDA-Public Use
  Company Number: US-009507513-1612USA000659

PATIENT
  Sex: Female
  Weight: 124.26 kg

DRUGS (1)
  1. NEXPLANON [Suspect]
     Active Substance: ETONOGESTREL
     Dosage: ONE ROD PER 3 YEARS
     Route: 059
     Dates: start: 2014, end: 20161130

REACTIONS (2)
  - No adverse event [Unknown]
  - Device breakage [Recovered/Resolved]
